FAERS Safety Report 13187306 (Version 2)
Quarter: 2017Q2

REPORT INFORMATION
  Report Type: Report from Study
  Country: ES (occurrence: ES)
  Receive Date: 20170206
  Receipt Date: 20170505
  Transmission Date: 20170830
  Serious: Yes (Hospitalization, Other)
  Sender: FDA-Public Use
  Company Number: ES-009507513-1609ESP002796

PATIENT
  Age: 54 Year
  Sex: Male

DRUGS (12)
  1. TEMOZOLOMIDE. [Suspect]
     Active Substance: TEMOZOLOMIDE
     Dosage: 150 MG/M2, QD
     Route: 048
     Dates: start: 20160919, end: 20160924
  2. DEXAMETHASONE. [Concomitant]
     Active Substance: DEXAMETHASONE
     Indication: PROPHYLAXIS
     Dosage: 2 MG, TID
     Route: 048
     Dates: start: 20160606, end: 20160825
  3. AQUORAL [Concomitant]
     Indication: EYE LUBRICATION THERAPY
     Dosage: 0.4%, QH
     Route: 047
     Dates: start: 20160721
  4. VIRGAN [Concomitant]
     Active Substance: GANCICLOVIR
     Indication: KERATITIS
     Dosage: 1.5 MG/G, BID
     Route: 047
     Dates: start: 20160721
  5. OMEPRAZOLE. [Concomitant]
     Active Substance: OMEPRAZOLE
     Indication: GASTRIC DISORDER
     Dosage: 20 MG, BID
     Route: 048
     Dates: start: 20160606
  6. LEVETIRACETAM. [Concomitant]
     Active Substance: LEVETIRACETAM
     Indication: DISORIENTATION
     Dosage: 500 MG, BID
     Route: 048
     Dates: start: 20160606, end: 20160825
  7. CICLOPLEGICO [Concomitant]
     Indication: MYDRIASIS
     Dosage: TOTAL DAILY DOSE: 10 MG/ML
     Route: 047
     Dates: start: 20160721
  8. TEMOZOLOMIDE. [Suspect]
     Active Substance: TEMOZOLOMIDE
     Dosage: 200 MG/M2, QD
     Route: 048
     Dates: start: 20161018
  9. POMADA EPITELIZANTE [Concomitant]
     Indication: ULCERATIVE KERATITIS
     Dosage: 10000 IU, TID
     Route: 047
     Dates: start: 20160721
  10. TEMOZOLOMIDE. [Suspect]
     Active Substance: TEMOZOLOMIDE
     Indication: GLIOBLASTOMA MULTIFORME
     Dosage: 75 MG/M2, QD
     Route: 048
     Dates: start: 20160701, end: 20160708
  11. THEALOZ DUO [Concomitant]
     Indication: EYE LUBRICATION THERAPY
     Dosage: 3 %, TID
     Route: 047
     Dates: start: 20160721
  12. VIGAMOX [Concomitant]
     Active Substance: MOXIFLOXACIN HYDROCHLORIDE
     Indication: CONJUNCTIVITIS
     Dosage: 5 MG/ML, BID
     Route: 047
     Dates: start: 20160721

REACTIONS (2)
  - Punctate keratitis [Unknown]
  - Abdominal sepsis [Recovered/Resolved]

NARRATIVE: CASE EVENT DATE: 20160811
